FAERS Safety Report 5927344-6 (Version None)
Quarter: 2008Q4

REPORT INFORMATION
  Report Type: 
  Country: None (occurrence: None)
  Receive Date: 20081021
  Receipt Date: 20081003
  Transmission Date: 20090506
  Serious: Yes (Disabling, Other)
  Sender: FDA-Public Use
  Company Number: CHPA2008US17350

PATIENT
  Sex: Male

DRUGS (1)
  1. 4 WAY FAST ACTING NASAL SPRAY (NCH) (PHENYLEPHRINE) NASAL SPRAY [Suspect]
     Dates: start: 20070831

REACTIONS (4)
  - COLLAPSE OF LUNG [None]
  - MALAISE [None]
  - PAIN [None]
  - SHOCK [None]
